FAERS Safety Report 23921648 (Version 1)
Quarter: 2024Q2

REPORT INFORMATION
  Report Type: Spontaneous
  Country: JP (occurrence: JP)
  Receive Date: 20240530
  Receipt Date: 20240530
  Transmission Date: 20240716
  Serious: Yes (Hospitalization)
  Sender: FDA-Public Use
  Company Number: JP-Eisai-202301479_LEN-EC_P_1

PATIENT
  Age: 56 Year
  Sex: Female
  Weight: 46 kg

DRUGS (5)
  1. LENVATINIB [Suspect]
     Active Substance: LENVATINIB
     Indication: Endometrial cancer
     Route: 048
     Dates: start: 20230404, end: 20230425
  2. PEMBROLIZUMAB [Suspect]
     Active Substance: PEMBROLIZUMAB
     Indication: Endometrial cancer
     Route: 042
     Dates: start: 20230404, end: 20230404
  3. LOXOPROFEN [Concomitant]
     Active Substance: LOXOPROFEN
     Indication: Neuropathy peripheral
     Dosage: AFTER EACH MEAL.
     Route: 048
     Dates: start: 20220218
  4. REBAMIPIDE [Concomitant]
     Active Substance: REBAMIPIDE
     Indication: Neuropathy peripheral
     Dosage: AFTER EACH MEAL.
     Route: 048
     Dates: start: 20230418
  5. MAGNESIUM OXIDE [Concomitant]
     Active Substance: MAGNESIUM OXIDE
     Indication: Constipation
     Dosage: AFTER EACH MEAL
     Route: 048
     Dates: start: 20220404

REACTIONS (1)
  - Immune-mediated hepatitis [Recovering/Resolving]

NARRATIVE: CASE EVENT DATE: 20230420
